FAERS Safety Report 7943537-0 (Version None)
Quarter: 2011Q4

REPORT INFORMATION
  Report Type: 
  Country: None (occurrence: None)
  Receive Date: 20111128
  Receipt Date: 20111123
  Transmission Date: 20120403
  Serious: Yes (Other)
  Sender: FDA-Public Use
  Company Number: GXKR2011DE003407

PATIENT

DRUGS (4)
  1. BISOPROLOL FUMARATE [Suspect]
     Indication: HYPERTENSION
     Dosage: 5 MG (INTAKE LONGER THAN SINCE 2005)
     Route: 048
  2. CANDESARTAN CILEXETIL [Suspect]
     Indication: HYPERTENSION
     Dosage: 8 MG - 16 MG ( (INTAKE LONGER THAN SINCE 2005))
     Route: 048
  3. ACETAMINOPHEN [Concomitant]
     Indication: MIGRAINE
     Dosage: AS NEEDED
     Route: 048
  4. ACETYLSALICYLIC ACID SRT [Concomitant]
     Indication: MIGRAINE
     Dosage: AS NEEDED
     Route: 048

REACTIONS (1)
  - CATARACT [None]
